FAERS Safety Report 25810605 (Version 1)
Quarter: 2025Q3

REPORT INFORMATION
  Report Type: Spontaneous
  Country: US (occurrence: US)
  Receive Date: 20250917
  Receipt Date: 20250917
  Transmission Date: 20251021
  Serious: No
  Sender: ALVOGEN
  Company Number: None

PATIENT

DRUGS (1)
  1. DEXTROAMPHETAMINE SACCHARATE, AMPHETAMINE ASPARTATE, DEXTROAMPHETAMINE [Suspect]
     Active Substance: AMPHETAMINE ASPARTATE\AMPHETAMINE SULFATE\DEXTROAMPHETAMINE SACCHARATE\DEXTROAMPHETAMINE SULFATE
     Indication: Attention deficit hyperactivity disorder
     Dates: start: 2025

REACTIONS (25)
  - Emotional disorder [Unknown]
  - Fatigue [Unknown]
  - Brain fog [Unknown]
  - Distractibility [Unknown]
  - Disturbance in attention [Unknown]
  - Feeling jittery [Unknown]
  - Anxiety [Unknown]
  - Insomnia [Unknown]
  - Nightmare [Unknown]
  - Muscle tightness [Unknown]
  - Compulsive lip biting [Unknown]
  - Compulsive cheek biting [Unknown]
  - Obsessive-compulsive disorder [Unknown]
  - Condition aggravated [Unknown]
  - Ulcer [Unknown]
  - Hypertension [Unknown]
  - Heart rate increased [Unknown]
  - Irritability [Unknown]
  - Psychomotor hyperactivity [Unknown]
  - Nervousness [Unknown]
  - Dermatillomania [Unknown]
  - Drug effect less than expected [Unknown]
  - Therapeutic response shortened [Unknown]
  - Therapeutic response changed [Unknown]
  - Product substitution issue [Unknown]
